FAERS Safety Report 14898678 (Version 2)
Quarter: 2018Q2

REPORT INFORMATION
  Report Type: Spontaneous
  Country: US (occurrence: US)
  Receive Date: 20180515
  Receipt Date: 20180523
  Transmission Date: 20180711
  Serious: Yes (Hospitalization, Other)
  Sender: FDA-Public Use
  Company Number: US-ALLERGAN-1825536US

PATIENT
  Age: 57 Year
  Sex: Male

DRUGS (1)
  1. ATROPINE SULFATE SOLUTION, 1% [Suspect]
     Active Substance: ATROPINE SULFATE
     Indication: DENTAL OPERATION
     Dosage: 113 MG, SINGLE
     Route: 060

REACTIONS (9)
  - Mucosal dryness [Recovered/Resolved]
  - Pupillary reflex impaired [Recovered/Resolved]
  - Tachycardia [Recovered/Resolved]
  - Bladder dilatation [Recovered/Resolved]
  - Off label use [Unknown]
  - Dysarthria [Recovered/Resolved]
  - Drug administration error [Unknown]
  - Delirium [Recovered/Resolved]
  - Accidental overdose [Unknown]
